FAERS Safety Report 6855872-8 (Version None)
Quarter: 2010Q3

REPORT INFORMATION
  Report Type: 
  Country: None (occurrence: None)
  Receive Date: 20100719
  Receipt Date: 20100709
  Transmission Date: 20110219
  Serious: Yes (Hospitalization)
  Sender: FDA-Public Use
  Company Number: CA-ABBOTT-09P-028-0612136-00

PATIENT
  Sex: Female

DRUGS (2)
  1. HUMIRA [Suspect]
     Indication: SERONEGATIVE ARTHRITIS
     Route: 058
     Dates: start: 20091016, end: 20091203
  2. HUMIRA [Suspect]

REACTIONS (3)
  - PHLEBITIS DEEP [None]
  - PULMONARY EMBOLISM [None]
  - THROMBOPHLEBITIS [None]
